FAERS Safety Report 6532913-9 (Version None)
Quarter: 2010Q1

REPORT INFORMATION
  Report Type: 
  Country: None (occurrence: None)
  Receive Date: 20100111
  Receipt Date: 20100104
  Transmission Date: 20100710
  Serious: Yes (Other)
  Sender: FDA-Public Use
  Company Number: US-ROCHE-546028

PATIENT
  Sex: Female

DRUGS (9)
  1. BONIVA [Suspect]
     Indication: BONE DENSITOMETRY
     Route: 042
     Dates: start: 20080104
  2. ACTONEL [Suspect]
     Indication: DRUG USE FOR UNKNOWN INDICATION
     Route: 048
  3. THYROLAR [Concomitant]
  4. PREDNISONE [Concomitant]
  5. METHOTREXATE [Concomitant]
  6. DARVOCET [Concomitant]
  7. PREMARIN [Concomitant]
  8. VITAMIN [Concomitant]
  9. OSCAL [Concomitant]

REACTIONS (7)
  - FRACTURE [None]
  - GAIT DISTURBANCE [None]
  - MUSCLE SPASMS [None]
  - MYALGIA [None]
  - OEDEMA PERIPHERAL [None]
  - RED BLOOD CELL SEDIMENTATION RATE INCREASED [None]
  - THERAPY REGIMEN CHANGED [None]
